FAERS Safety Report 21142395 (Version 1)
Quarter: 2022Q3

REPORT INFORMATION
  Report Type: Spontaneous
  Country: US (occurrence: US)
  Receive Date: 20220728
  Receipt Date: 20220728
  Transmission Date: 20221026
  Serious: Yes (Life-Threatening, Hospitalization, Other)
  Sender: FDA-Public Use
  Company Number: US-SLATE RUN PHARMACEUTICALS-22US001224

PATIENT

DRUGS (4)
  1. IBUPROFEN [Suspect]
     Active Substance: IBUPROFEN
     Indication: COVID-19
     Dosage: UNK
  2. IVERMECTIN [Suspect]
     Active Substance: IVERMECTIN
     Indication: COVID-19
  3. HYDROGEN PEROXIDE [Suspect]
     Active Substance: HYDROGEN PEROXIDE
     Indication: COVID-19
  4. CASIRIVIMAB\IMDEVIMAB [Concomitant]
     Active Substance: CASIRIVIMAB\IMDEVIMAB
     Indication: COVID-19
     Dosage: 1 DOSAGE FORM

REACTIONS (8)
  - Shock haemorrhagic [Recovered/Resolved]
  - Gastritis erosive [Unknown]
  - Syncope [Recovered/Resolved]
  - Thrombosis [Recovered/Resolved]
  - Neuroendocrine tumour [Recovered/Resolved]
  - Hypoxia [Recovering/Resolving]
  - Gastric ulcer haemorrhage [Recovered/Resolved]
  - Intentional product misuse [Unknown]
